FAERS Safety Report 9769824 (Version 1)
Quarter: 2013Q4

REPORT INFORMATION
  Report Type: Spontaneous
  Country: US (occurrence: None)
  Receive Date: 20131216
  Receipt Date: 20131216
  Transmission Date: 20140711
  Serious: Yes (Hospitalization)
  Sender: FDA-Public Use
  Company Number: 2013AP010351

PATIENT
  Age: 77 Year
  Sex: Male

DRUGS (3)
  1. ALENDRONATE SODIUM TABLETS [Suspect]
     Indication: BONE DENSITY DECREASED
  2. OMEPRAZOLE [Concomitant]
  3. ASPIIRN [Concomitant]

REACTIONS (3)
  - Laryngeal ulceration [None]
  - Haemoptysis [None]
  - Accidental overdose [None]
